FAERS Safety Report 17444540 (Version 2)
Quarter: 2020Q1

REPORT INFORMATION
  Report Type: Spontaneous
  Country: US (occurrence: US)
  Receive Date: 20200221
  Receipt Date: 20200303
  Transmission Date: 20200409
  Serious: Yes (Other)
  Sender: FDA-Public Use
  Company Number: US-RECKITT BENCKISER HEALTHCARE INT LIMITED-RB-82440-2020

PATIENT
  Age: 60 Year
  Sex: Female

DRUGS (4)
  1. MUCINEX DM MAXIMUM STRENGTH [Suspect]
     Active Substance: DEXTROMETHORPHAN HYDROBROMIDE\GUAIFENESIN
     Dosage: 1200 MILLIGRAM, SINGLE, TOOK ONE DOSE IN THE EVENING AROUND 9 PM
     Route: 065
     Dates: start: 20200215
  2. MUCINEX DM MAXIMUM STRENGTH [Suspect]
     Active Substance: DEXTROMETHORPHAN HYDROBROMIDE\GUAIFENESIN
     Indication: COUGH
     Dosage: 1200 MILLIGRAM, SINGLE, TOOK 1 TABLET AROUND 9 PM
     Route: 065
     Dates: start: 20200212, end: 202002
  3. MUCINEX DM MAXIMUM STRENGTH [Suspect]
     Active Substance: DEXTROMETHORPHAN HYDROBROMIDE\GUAIFENESIN
     Dosage: 1200 MILLIGRAM, BID, TOOK ONE TABLET DURING THE DAY AND ONE IN THE EVENING
     Route: 065
     Dates: start: 20200213
  4. MUCINEX DM MAXIMUM STRENGTH [Suspect]
     Active Substance: DEXTROMETHORPHAN HYDROBROMIDE\GUAIFENESIN
     Dosage: 1200 MILLIGRAM, SINGLE, TOOK ONE TABLET IN THE EVENING AT 9 PM, AMOUNT USED: 5 TABLETS
     Route: 065
     Dates: start: 20200217, end: 202002

REACTIONS (10)
  - Loss of consciousness [Recovering/Resolving]
  - Confusional state [Recovering/Resolving]
  - Headache [Recovering/Resolving]
  - Syncope [Recovering/Resolving]
  - Expired product administered [Recovering/Resolving]
  - Disorientation [Recovering/Resolving]
  - Dyspnoea [Recovering/Resolving]
  - Somnolence [Recovering/Resolving]
  - Feeling abnormal [Recovering/Resolving]
  - Diarrhoea [Recovering/Resolving]

NARRATIVE: CASE EVENT DATE: 20200212
